FAERS Safety Report 23105356 (Version 1)
Quarter: 2023Q4

REPORT INFORMATION
  Report Type: Spontaneous
  Country: US (occurrence: None)
  Receive Date: 20231023
  Receipt Date: 20231023
  Transmission Date: 20240110
  Serious: Yes (Hospitalization)
  Sender: FDA-Public Use
  Company Number: None

PATIENT
  Age: 79 Year
  Sex: Male
  Weight: 73.9 kg

DRUGS (4)
  1. CLARITHROMYCIN CITRATE [Suspect]
     Active Substance: CLARITHROMYCIN CITRATE
     Dosage: FREQUENCY : TWICE A DAY;?
     Route: 048
     Dates: start: 20221114, end: 20221208
  2. ASPIRIN [Suspect]
     Active Substance: ASPIRIN
     Dates: end: 20221208
  3. CLOPIDOGREL [Suspect]
     Active Substance: CLOPIDOGREL BISULFATE
  4. AMOXICILLIN [Suspect]
     Active Substance: AMOXICILLIN

REACTIONS (5)
  - Cardiac failure congestive [None]
  - Cardiogenic shock [None]
  - Multiple organ dysfunction syndrome [None]
  - Cardiac failure acute [None]
  - Pulseless electrical activity [None]

NARRATIVE: CASE EVENT DATE: 20221126
